FAERS Safety Report 24595608 (Version 1)
Quarter: 2024Q4

REPORT INFORMATION
  Report Type: Spontaneous
  Country: JP (occurrence: JP)
  Receive Date: 20241109
  Receipt Date: 20241109
  Transmission Date: 20250115
  Serious: Yes (Other)
  Sender: ALEXION PHARMACEUTICALS
  Company Number: JP-ASTRAZENECA-240114379_013120_P_1

PATIENT
  Age: 76 Year
  Weight: 68 kg

DRUGS (16)
  1. DURVALUMAB [Suspect]
     Active Substance: DURVALUMAB
     Indication: Hepatocellular carcinoma
  2. DURVALUMAB [Suspect]
     Active Substance: DURVALUMAB
  3. DURVALUMAB [Suspect]
     Active Substance: DURVALUMAB
  4. DURVALUMAB [Suspect]
     Active Substance: DURVALUMAB
  5. TREMELIMUMAB [Suspect]
     Active Substance: TREMELIMUMAB
     Indication: Hepatocellular carcinoma
  6. TREMELIMUMAB [Suspect]
     Active Substance: TREMELIMUMAB
  7. TREMELIMUMAB [Suspect]
     Active Substance: TREMELIMUMAB
  8. TREMELIMUMAB [Suspect]
     Active Substance: TREMELIMUMAB
  9. NIFEDIPINE [Concomitant]
     Active Substance: NIFEDIPINE
     Dosage: DOSE UNKNOWN
  10. NIFEDIPINE [Concomitant]
     Active Substance: NIFEDIPINE
     Dosage: DOSE UNKNOWN
  11. SILODOSIN OD [Concomitant]
     Dosage: DOSE UNKNOWN
  12. SILODOSIN OD [Concomitant]
     Dosage: DOSE UNKNOWN
  13. TOBRAMYCIN [Concomitant]
     Active Substance: TOBRAMYCIN\TOBRAMYCIN SULFATE
     Dosage: DOSE UNKNOWN
  14. TOBRAMYCIN [Concomitant]
     Active Substance: TOBRAMYCIN\TOBRAMYCIN SULFATE
     Dosage: DOSE UNKNOWN
  15. GLYCOSAMINOGLYCANS [Concomitant]
     Active Substance: GLYCOSAMINOGLYCANS
     Dosage: DOSE UNKNOWN
  16. GLYCOSAMINOGLYCANS [Concomitant]
     Active Substance: GLYCOSAMINOGLYCANS
     Dosage: DOSE UNKNOWN

REACTIONS (2)
  - Immune-mediated enterocolitis [Recovered/Resolved]
  - Rash [Recovered/Resolved]
